FAERS Safety Report 8817612 (Version 3)
Quarter: 2012Q4

REPORT INFORMATION
  Report Type: Report from Study
  Country: NL (occurrence: NL)
  Receive Date: 20121001
  Receipt Date: 20121213
  Transmission Date: 20130627
  Serious: Yes (Hospitalization, Other)
  Sender: FDA-Public Use
  Company Number: NL-SANOFI-AVENTIS-2012SA069812

PATIENT
  Age: 54 Year
  Sex: Female
  Weight: 71 kg

DRUGS (6)
  1. DOCETAXEL [Suspect]
     Indication: NODE-NEGATIVE BREAST CANCER
     Route: 042
     Dates: start: 20111026, end: 20120302
  2. CYCLOPHOSPHAMIDE [Suspect]
     Indication: NODE-NEGATIVE BREAST CANCER
     Route: 042
     Dates: start: 20110803, end: 20111005
  3. DOXORUBICIN [Suspect]
     Indication: NODE-NEGATIVE BREAST CANCER
     Route: 042
     Dates: start: 20110803, end: 20111005
  4. TRASTUZUMAB [Suspect]
     Indication: NODE-NEGATIVE BREAST CANCER
     Route: 042
     Dates: start: 20111026, end: 20120111
  5. TAMOXIFEN [Suspect]
     Indication: NODE-NEGATIVE BREAST CANCER
     Route: 048
     Dates: start: 20120128, end: 20120305
  6. PACLITAXEL [Suspect]
     Indication: NODE-NEGATIVE BREAST CANCER
     Route: 042
     Dates: start: 20111026, end: 20120111

REACTIONS (2)
  - Angina pectoris [Recovered/Resolved]
  - Dyspnoea [Recovered/Resolved]
